FAERS Safety Report 21247769 (Version 1)
Quarter: 2022Q3

REPORT INFORMATION
  Report Type: Spontaneous
  Country: US (occurrence: None)
  Receive Date: 20220824
  Receipt Date: 20220824
  Transmission Date: 20221026
  Serious: No
  Sender: FDA-Public Use
  Company Number: US-Emmaus Medical, Inc.-EMM202202-000031

PATIENT
  Age: 25 Year
  Sex: Female
  Weight: 61.235 kg

DRUGS (3)
  1. ENDARI [Suspect]
     Active Substance: GLUTAMINE
     Indication: Sickle cell disease
     Dosage: 15 GM
     Route: 048
     Dates: start: 20201220
  2. ENDARI [Suspect]
     Active Substance: GLUTAMINE
     Dosage: UNKNOWN
     Route: 048
  3. HYDROXYUREA [Concomitant]
     Active Substance: HYDROXYUREA
     Indication: Product used for unknown indication
     Dosage: UNKNOWN (TWO)
     Route: 048

REACTIONS (2)
  - Nail discolouration [Recovering/Resolving]
  - Product dose omission issue [Unknown]

NARRATIVE: CASE EVENT DATE: 20220213
